FAERS Safety Report 23035337 (Version 1)
Quarter: 2023Q4

REPORT INFORMATION
  Report Type: Spontaneous
  Country: CN (occurrence: CN)
  Receive Date: 20231005
  Receipt Date: 20231005
  Transmission Date: 20240110
  Serious: Yes (Hospitalization, Other)
  Sender: FDA-Public Use
  Company Number: None

PATIENT
  Age: 27 Year
  Sex: Male
  Weight: 60 kg

DRUGS (8)
  1. CYCLOPHOSPHAMIDE [Suspect]
     Active Substance: CYCLOPHOSPHAMIDE
     Indication: Acute lymphocytic leukaemia
     Dosage: 1.2 G, ONE TIME IN ONE DAY, DILUTED WITH 40 ML OF NS
     Route: 041
     Dates: start: 20230831, end: 20230907
  2. CYCLOPHOSPHAMIDE [Suspect]
     Active Substance: CYCLOPHOSPHAMIDE
     Indication: Chemotherapy
  3. SODIUM CHLORIDE [Suspect]
     Active Substance: SODIUM CHLORIDE
     Indication: Medication dilution
     Dosage: 40 ML, ONE TIME IN ONE DAY, USED TO DILUTE 1.2 G OF CYCLOPHOSPHAMIDE
     Route: 041
     Dates: start: 20230831, end: 20230907
  4. SODIUM CHLORIDE [Suspect]
     Active Substance: SODIUM CHLORIDE
     Dosage: 100 ML, ONE TIME IN ONE DAY, USED TO DILUTE 167 MG CYTARABINE HYDROCHLORIDE
     Route: 042
     Dates: start: 20230829, end: 20230909
  5. CYTARABINE HYDROCHLORIDE [Suspect]
     Active Substance: CYTARABINE HYDROCHLORIDE
     Indication: Acute lymphocytic leukaemia
     Dosage: 167 MG, ONE TIME IN ONE DAY, DILUTED WITH 100 ML OF NS
     Route: 042
     Dates: start: 20230829, end: 20230909
  6. CYTARABINE HYDROCHLORIDE [Suspect]
     Active Substance: CYTARABINE HYDROCHLORIDE
     Indication: Chemotherapy
  7. PEGASPARGASE [Suspect]
     Active Substance: PEGASPARGASE
     Indication: Acute lymphocytic leukaemia
     Dosage: 3750 IU, ONE TIME IN ONE DAY
     Route: 030
     Dates: start: 20230904, end: 20230904
  8. PEGASPARGASE [Suspect]
     Active Substance: PEGASPARGASE
     Indication: Chemotherapy

REACTIONS (3)
  - Myelosuppression [Recovered/Resolved]
  - Condition aggravated [Unknown]
  - Acute lymphocytic leukaemia [Unknown]

NARRATIVE: CASE EVENT DATE: 20230915
